FAERS Safety Report 5482410-7 (Version None)
Quarter: 2007Q4

REPORT INFORMATION
  Report Type: 
  Country: None (occurrence: None)
  Receive Date: 20071011
  Receipt Date: 20071009
  Transmission Date: 20080405
  Serious: Yes (Life-Threatening, Hospitalization)
  Sender: FDA-Public Use
  Company Number: B0490345A

PATIENT
  Age: 37 Year
  Sex: Male

DRUGS (2)
  1. PAXIL [Suspect]
     Indication: DRUG USE FOR UNKNOWN INDICATION
     Dosage: 10MG PER DAY
     Route: 048
     Dates: start: 20070927
  2. AMOBAN [Concomitant]
     Route: 048

REACTIONS (3)
  - FALL [None]
  - FRACTURE [None]
  - SUICIDE ATTEMPT [None]
